FAERS Safety Report 6753811-1 (Version None)
Quarter: 2010Q2

REPORT INFORMATION
  Report Type: 
  Country: None (occurrence: None)
  Receive Date: 20100603
  Receipt Date: 20100526
  Transmission Date: 20101027
  Serious: Yes (Hospitalization, Other)
  Sender: FDA-Public Use
  Company Number: TR-BAYER-201026745GPV

PATIENT
  Age: 76 Year
  Sex: Female

DRUGS (1)
  1. CIPROFLOXACIN [Suspect]
     Indication: OROPHARYNGEAL PAIN
     Dosage: TABLETS WERE PRESCRIPED THREE DAYS PRIOR HER HOSPITALIZATION

REACTIONS (7)
  - CHEST PAIN [None]
  - CYANOSIS [None]
  - DYSPNOEA [None]
  - FOREIGN BODY ASPIRATION [None]
  - HYPOXIA [None]
  - RESPIRATORY FAILURE [None]
  - TACHYPNOEA [None]
